FAERS Safety Report 4684481-4 (Version None)
Quarter: 2005Q2

REPORT INFORMATION
  Report Type: 
  Country: None (occurrence: None)
  Receive Date: 20050606
  Receipt Date: 20050411
  Transmission Date: 20051028
  Serious: Yes (Other)
  Sender: FDA-Public Use
  Company Number: A0553534B

PATIENT
  Age: 38 Year
  Sex: Female
  Weight: 60.8727 kg

DRUGS (3)
  1. FERROUS SULFATE TAB [Suspect]
     Indication: HAEMOGLOBIN DECREASED
     Dosage: 1 TABLET PER DAY / ORAL
     Route: 048
     Dates: start: 20050404
  2. PRENATAL VITAMINS [Concomitant]
  3. METHYLCELLULOSE [Concomitant]

REACTIONS (2)
  - DRUG EXPOSURE DURING PREGNANCY [None]
  - GESTATIONAL DIABETES [None]
